FAERS Safety Report 11291439 (Version 1)
Quarter: 2015Q3

REPORT INFORMATION
  Report Type: Spontaneous
  Country: US (occurrence: None)
  Receive Date: 20150720
  Receipt Date: 20150720
  Transmission Date: 20151125
  Serious: Yes (Other)
  Sender: FDA-Public Use
  Company Number: None

PATIENT

DRUGS (1)
  1. LITHIUM ION SOLUTION, USP 8MEQ/5ML [Suspect]
     Active Substance: LITHIUM

REACTIONS (1)
  - Product label issue [None]

NARRATIVE: CASE EVENT DATE: 20150716
